FAERS Safety Report 5158973-8 (Version None)
Quarter: 2006Q4

REPORT INFORMATION
  Report Type: 
  Country: None (occurrence: None)
  Receive Date: 20061128
  Receipt Date: 20061120
  Transmission Date: 20070319
  Serious: Yes (Hospitalization)
  Sender: FDA-Public Use
  Company Number: US-BRISTOL-MYERS SQUIBB COMPANY-13584552

PATIENT
  Age: 63 Year
  Sex: Male
  Weight: 83 kg

DRUGS (8)
  1. CETUXIMAB [Suspect]
     Indication: NEOPLASM MALIGNANT
     Route: 042
     Dates: start: 20061101, end: 20061101
  2. CISPLATIN [Suspect]
     Indication: NEOPLASM MALIGNANT
     Route: 042
     Dates: start: 20061101, end: 20061101
  3. RADIATION THERAPY [Suspect]
     Indication: NEOPLASM MALIGNANT
     Dosage: 2.0 GY PER DAY, 5 DAYS PER WEEK BEGINNING WEEK 2, ENDING WEEK 7.
  4. PRAVACHOL [Concomitant]
  5. ALTACE [Concomitant]
  6. CLINDAMYCIN [Concomitant]
  7. TEMAZEPAM [Concomitant]
  8. HYDROCODONE + ACETAMINOPHEN [Concomitant]

REACTIONS (4)
  - DEHYDRATION [None]
  - NAUSEA [None]
  - STOMATITIS [None]
  - VOMITING [None]
